FAERS Safety Report 25879390 (Version 2)
Quarter: 2025Q4

REPORT INFORMATION
  Report Type: Spontaneous
  Country: CA (occurrence: CA)
  Receive Date: 20251003
  Receipt Date: 20251013
  Transmission Date: 20260117
  Serious: Yes (Other)
  Sender: ROCHE
  Company Number: CA-ROCHE-10000399084

PATIENT
  Age: 52 Year
  Sex: Female

DRUGS (6)
  1. VABYSMO [Suspect]
     Active Substance: FARICIMAB-SVOA
     Indication: Neovascular age-related macular degeneration
     Route: 065
     Dates: start: 20250422
  2. VABYSMO [Suspect]
     Active Substance: FARICIMAB-SVOA
     Route: 065
     Dates: start: 20250520
  3. VABYSMO [Suspect]
     Active Substance: FARICIMAB-SVOA
     Route: 065
     Dates: start: 20250701
  4. PREDNISONE [Concomitant]
     Active Substance: PREDNISONE
     Indication: Vitrectomy
     Route: 048
  5. DIMETHICONE [Concomitant]
     Active Substance: DIMETHICONE
     Dosage: LEFT EYE
     Route: 050
  6. Pred Forte treatment [Concomitant]
     Dosage: 1 WEEK, LEFT EYE

REACTIONS (5)
  - Headache [Unknown]
  - Eye swelling [Unknown]
  - Anterior chamber inflammation [Unknown]
  - Keratic precipitates [Unknown]
  - Retinal tear [Unknown]
